FAERS Safety Report 6987889-7 (Version None)
Quarter: 2010Q3

REPORT INFORMATION
  Report Type: 
  Country: None (occurrence: None)
  Receive Date: 20100916
  Receipt Date: 20100907
  Transmission Date: 20110219
  Serious: No
  Sender: FDA-Public Use
  Company Number: US-ABBOTT-10P-163-0670035-00

PATIENT
  Sex: Female

DRUGS (1)
  1. TRILIPIX [Suspect]
     Indication: HYPERLIPIDAEMIA
     Route: 048
     Dates: start: 20100701, end: 20100907

REACTIONS (1)
  - PHOTOSENSITIVITY REACTION [None]
